FAERS Safety Report 6059424-1 (Version None)
Quarter: 2009Q1

REPORT INFORMATION
  Report Type: 
  Country: None (occurrence: None)
  Receive Date: 20090130
  Receipt Date: 20090127
  Transmission Date: 20090719
  Serious: Yes (Death)
  Sender: FDA-Public Use
  Company Number: PHHY2009JP02526

PATIENT
  Age: 58 Year
  Sex: Male

DRUGS (3)
  1. VOLTAREN [Suspect]
     Indication: MUSCULOSKELETAL PAIN
     Dosage: 25 MG, QD
     Route: 048
     Dates: start: 20080322
  2. VOLTAREN [Suspect]
     Dosage: 50 MG, QD
     Route: 054
     Dates: start: 20080322
  3. BLESIN [Suspect]
     Indication: MUSCULOSKELETAL PAIN
     Dosage: UNK
     Route: 048
     Dates: start: 20080322

REACTIONS (1)
  - DEATH [None]
